FAERS Safety Report 22336669 (Version 1)
Quarter: 2023Q2

REPORT INFORMATION
  Report Type: Spontaneous
  Country: US (occurrence: None)
  Receive Date: 20230517
  Receipt Date: 20230517
  Transmission Date: 20230721
  Serious: Yes (Hospitalization)
  Sender: FDA-Public Use
  Company Number: None

PATIENT
  Age: 74 Year
  Sex: Male
  Weight: 79.4 kg

DRUGS (12)
  1. INFLIXIMAB [Suspect]
     Active Substance: INFLIXIMAB
     Indication: Rheumatoid arthritis
     Dosage: OTHER FREQUENCY : EVERY 8 WEEKS;?
     Route: 042
     Dates: start: 20210617, end: 20230516
  2. omeprazole 20 mg po qhs [Concomitant]
     Dates: start: 20190701
  3. PAXLOVID [Concomitant]
     Active Substance: NIRMATRELVIR\RITONAVIR
     Dates: start: 20230502, end: 20230506
  4. prednisone 5 mg daily (dosing changed throughout the years) [Concomitant]
     Dates: start: 19980501
  5. irbesartan 75 mg daily [Concomitant]
     Dates: start: 20190128
  6. atorvastatin 80 mg daily [Concomitant]
     Dates: start: 20140512
  7. metoprolol tartrate 12.5 mg bid [Concomitant]
     Dates: start: 20140512
  8. ASPIRIN [Concomitant]
     Active Substance: ASPIRIN
     Dates: start: 20160501
  9. multivitamin daily [Concomitant]
     Dates: start: 20220501
  10. fish oil daily [Concomitant]
     Dates: start: 20220501
  11. Boswellia-glucosamine-vitamin d daily [Concomitant]
     Dates: start: 20220501
  12. ascorbic acid daily [Concomitant]

REACTIONS (5)
  - Chest pain [None]
  - Pain [None]
  - Back pain [None]
  - Chills [None]
  - Infusion related reaction [None]

NARRATIVE: CASE EVENT DATE: 20230516
